FAERS Safety Report 9001740 (Version 2)
Quarter: 2013Q2

REPORT INFORMATION
  Report Type: Spontaneous
  Country: US (occurrence: US)
  Receive Date: 20130107
  Receipt Date: 20130404
  Transmission Date: 20140414
  Serious: Yes (Other)
  Sender: FDA-Public Use
  Company Number: US-ASTELLAS-2012US012497

PATIENT
  Age: 50 Year
  Sex: Female

DRUGS (4)
  1. MYRBETRIQ [Suspect]
     Indication: URINARY INCONTINENCE
     Dosage: UNK
     Route: 048
     Dates: start: 201211, end: 20121216
  2. VESICARE [Concomitant]
     Indication: BLADDER DISORDER
     Dosage: UNK
     Route: 048
  3. MICARDIS [Concomitant]
     Indication: BLOOD PRESSURE
     Dosage: UNK
     Route: 065
  4. PRAVASTATIN [Concomitant]
     Indication: BLOOD CHOLESTEROL
     Dosage: UNK
     Route: 065

REACTIONS (1)
  - Blood pressure increased [Recovered/Resolved]
